FAERS Safety Report 6337952-9 (Version None)
Quarter: 2009Q3

REPORT INFORMATION
  Report Type: 
  Country: None (occurrence: None)
  Receive Date: 20090902
  Receipt Date: 20090820
  Transmission Date: 20100115
  Serious: Yes (Hospitalization)
  Sender: FDA-Public Use
  Company Number: JP-PFIZER INC-2009260541

PATIENT
  Age: 83 Year

DRUGS (4)
  1. CELECOX [Suspect]
     Dosage: 100 MG, 2X/DAY
     Route: 048
     Dates: start: 20090708
  2. BLOPRESS [Concomitant]
     Dosage: UNK
     Dates: start: 20090603
  3. TAKEPRON [Concomitant]
     Dosage: UNK
     Dates: start: 20090603
  4. KELNAC [Concomitant]
     Dosage: UNK
     Dates: start: 20090603

REACTIONS (3)
  - ERYTHEMA MULTIFORME [None]
  - HYPERKALAEMIA [None]
  - RENAL DISORDER [None]
